FAERS Safety Report 7232500-3 (Version None)
Quarter: 2011Q1

REPORT INFORMATION
  Report Type: 
  Country: None (occurrence: None)
  Receive Date: 20110107
  Receipt Date: 20101221
  Transmission Date: 20110831
  Serious: Yes (Life-Threatening, Disabling, Other)
  Sender: FDA-Public Use
  Company Number: 2010P1002143

PATIENT
  Age: 44 Year
  Sex: Female

DRUGS (1)
  1. CARBAMAZEPINE [Suspect]

REACTIONS (20)
  - SKIN EXFOLIATION [None]
  - ALOPECIA [None]
  - ONYCHOMADESIS [None]
  - VISUAL ACUITY REDUCED [None]
  - CHEMICAL INJURY [None]
  - PIGMENTATION DISORDER [None]
  - TOXIC EPIDERMAL NECROLYSIS [None]
  - SKIN LESION [None]
  - URTICARIA [None]
  - HYPERSENSITIVITY [None]
  - MULTIPLE INJURIES [None]
  - SCAR [None]
  - STEVENS-JOHNSON SYNDROME [None]
  - MULTI-ORGAN DISORDER [None]
  - SKIN DISCOLOURATION [None]
  - BLINDNESS [None]
  - RASH [None]
  - PRURITUS [None]
  - SWELLING [None]
  - MUCOUS MEMBRANE DISORDER [None]
